FAERS Safety Report 12251977 (Version 2)
Quarter: 2016Q2

REPORT INFORMATION
  Report Type: Spontaneous
  Country: US (occurrence: US)
  Receive Date: 20160411
  Receipt Date: 20160429
  Transmission Date: 20160815
  Serious: Yes (Hospitalization)
  Sender: FDA-Public Use
  Company Number: US-BEH-2016060922

PATIENT
  Sex: Female
  Weight: 76 kg

DRUGS (31)
  1. MEDROL [Concomitant]
     Active Substance: METHYLPREDNISOLONE
  2. ERYTHROMYCIN. [Concomitant]
     Active Substance: ERYTHROMYCIN
  3. DUONEB [Concomitant]
     Active Substance: ALBUTEROL SULFATE\IPRATROPIUM BROMIDE
  4. FOSAMAX [Concomitant]
     Active Substance: ALENDRONATE SODIUM
  5. TOBRAMYCIN. [Concomitant]
     Active Substance: TOBRAMYCIN
  6. AZITHROMYCIN ANHYDROUS. [Concomitant]
     Active Substance: AZITHROMYCIN ANHYDROUS
  7. SPIRONOLACTONE. [Concomitant]
     Active Substance: SPIRONOLACTONE
  8. ACETAMINOPHEN\HYDROCODONE BITARTRATE [Concomitant]
     Active Substance: ACETAMINOPHEN\HYDROCODONE BITARTRATE
  9. HIZENTRA [Suspect]
     Active Substance: HUMAN IMMUNOGLOBULIN G
     Indication: HYPOGAMMAGLOBULINAEMIA
     Dosage: STRENGTH OF DOSAGE FORM: 1GM 5ML, 4 GM 20ML VIALS
     Route: 058
  10. DOXYCYCLINE. [Concomitant]
     Active Substance: DOXYCYCLINE
  11. FERROUS SULFATE. [Concomitant]
     Active Substance: FERROUS SULFATE
  12. FOLIC ACID. [Concomitant]
     Active Substance: FOLIC ACID
  13. VESICARE [Concomitant]
     Active Substance: SOLIFENACIN SUCCINATE
  14. GABAPENTIN. [Concomitant]
     Active Substance: GABAPENTIN
  15. DIPHENHYDRAMINE. [Concomitant]
     Active Substance: DIPHENHYDRAMINE
  16. LEXAPRO [Concomitant]
     Active Substance: ESCITALOPRAM OXALATE
  17. LMX [Concomitant]
     Active Substance: LIDOCAINE
  18. CALCIUM+D [Concomitant]
  19. PROMETHAZINE [Concomitant]
     Active Substance: PROMETHAZINE\PROMETHAZINE HYDROCHLORIDE
  20. CETIRIZINE [Concomitant]
     Active Substance: CETIRIZINE HYDROCHLORIDE
  21. ABILIFY [Concomitant]
     Active Substance: ARIPIPRAZOLE
  22. EPIPEN [Concomitant]
     Active Substance: EPINEPHRINE
  23. CYMBALTA [Concomitant]
     Active Substance: DULOXETINE HYDROCHLORIDE
  24. CLINDAMYCIN [Concomitant]
     Active Substance: CLINDAMYCIN\CLINDAMYCIN PHOSPHATE
  25. SUPER B COMPLEX [Concomitant]
     Active Substance: CYANOCOBALAMIN\DEXPANTHENOL\NIACINAMIDE\PYRIDOXINE HYDROCHLORIDE\RIBOFLAVIN 5^-PHOSPHATE SODIUM\THIAMINE HYDROCHLORIDE\VITAMIN B COMPLEX
  26. ESTRADIOL. [Concomitant]
     Active Substance: ESTRADIOL
  27. HIZENTRA [Suspect]
     Active Substance: HUMAN IMMUNOGLOBULIN G
     Indication: IMMUNODEFICIENCY COMMON VARIABLE
     Dosage: STRENGTH OF DOSAGE FORM: 1GM 5ML, 4GM 20ML VIALS
     Route: 058
  28. SENNA LAXATIVE [Concomitant]
     Active Substance: SENNOSIDES
  29. OXYCODONE [Concomitant]
     Active Substance: OXYCODONE
  30. METHOTREXATE [Concomitant]
     Active Substance: METHOTREXATE
  31. NEXIUM [Concomitant]
     Active Substance: ESOMEPRAZOLE MAGNESIUM

REACTIONS (2)
  - Lung infection [Recovering/Resolving]
  - Staphylococcal infection [Recovering/Resolving]
